FAERS Safety Report 23144255 (Version 1)
Quarter: 2023Q4

REPORT INFORMATION
  Report Type: Spontaneous
  Country: US (occurrence: US)
  Receive Date: 20231103
  Receipt Date: 20231103
  Transmission Date: 20240110
  Serious: No
  Sender: FDA-Public Use
  Company Number: US-PFIZER INC-202300349102

PATIENT
  Age: 70 Year
  Sex: Female

DRUGS (19)
  1. PAXLOVID [Suspect]
     Active Substance: NIRMATRELVIR\RITONAVIR
     Indication: COVID-19 treatment
     Dosage: UNK
     Dates: start: 20231017, end: 20231021
  2. LISINOPRIL [Concomitant]
     Active Substance: LISINOPRIL
     Dosage: UNK
     Dates: start: 201806
  3. METOPROLOL TARTRATE [Concomitant]
     Active Substance: METOPROLOL TARTRATE
     Dosage: UNK
     Dates: start: 201806
  4. EZETIMIBE [Concomitant]
     Active Substance: EZETIMIBE
     Dosage: UNK
     Dates: start: 201901
  5. PRAVASTATIN SODIUM [Concomitant]
     Active Substance: PRAVASTATIN SODIUM
     Dosage: UNK
     Dates: start: 201806, end: 20231017
  6. ASPIRIN [Concomitant]
     Active Substance: ASPIRIN
     Dosage: LOW DOSE
     Dates: start: 201806
  7. VITAMIN B12 [Concomitant]
     Active Substance: CYANOCOBALAMIN
     Dosage: UNK
     Dates: start: 201301
  8. DIETARY SUPPLEMENT [Concomitant]
     Active Substance: DIETARY SUPPLEMENT
     Dosage: UNK
     Dates: start: 202001
  9. ARGININE [Concomitant]
     Active Substance: ARGININE
     Dosage: UNK
     Dates: start: 202001
  10. PROBIOTICS NOS [Concomitant]
     Active Substance: PROBIOTICS NOS
     Dosage: UNK (60 BILLION PROBIOTIC)
     Dates: start: 202101
  11. VITAMIN D3 [Concomitant]
     Active Substance: CHOLECALCIFEROL
     Dosage: UNK
     Dates: start: 200401
  12. COENZYME Q10 [Concomitant]
     Active Substance: DIETARY SUPPLEMENT\UBIDECARENONE
     Dosage: UNK
     Dates: start: 201806
  13. CHONDROITIN SULFATE (BOVINE)\DIMETHYL SULFONE\GLUCOSAMINE SULFATE [Concomitant]
     Active Substance: CHONDROITIN SULFATE (BOVINE)\DIMETHYL SULFONE\GLUCOSAMINE SULFATE
     Dosage: UNK
     Dates: start: 201501
  14. HERBALS\TURMERIC [Concomitant]
     Active Substance: HERBALS\TURMERIC
     Dosage: UNK
     Dates: start: 202001
  15. EPA [DOCOSAHEXAENOIC ACID;EICOSAPENTAENOIC ACID;TOCOPHEROL] [Concomitant]
     Dosage: UNK
     Dates: start: 201806
  16. VITAMIN B COMPLEX [Concomitant]
     Active Substance: CYANOCOBALAMIN\DEXPANTHENOL\NIACINAMIDE\PYRIDOXINE HYDROCHLORIDE\RIBOFLAVIN 5^-PHOSPHATE SODIUM\THIA
     Dosage: UNK
     Dates: start: 201201
  17. ZINC [Concomitant]
     Active Substance: PYRITHIONE ZINC\ZINC\ZINC CHLORIDE
     Dosage: UNK
     Dates: start: 20231001
  18. MK 7 [MENAQUINONE-7] [Concomitant]
     Dosage: UNK (MK-7 K2)
     Dates: start: 202001
  19. PQQ [Concomitant]
     Dosage: UNK
     Dates: start: 202201

REACTIONS (2)
  - COVID-19 [Recovering/Resolving]
  - Disease recurrence [Recovering/Resolving]

NARRATIVE: CASE EVENT DATE: 20231026
